FAERS Safety Report 19263428 (Version 1)
Quarter: 2021Q2

REPORT INFORMATION
  Report Type: Spontaneous
  Country: US (occurrence: US)
  Receive Date: 20210517
  Receipt Date: 20210517
  Transmission Date: 20210717
  Serious: No
  Sender: FDA-Public Use
  Company Number: US-009507513-2105USA000413

PATIENT
  Age: 61 Year
  Sex: Male

DRUGS (3)
  1. CARBOPLATIN. [Concomitant]
     Active Substance: CARBOPLATIN
     Indication: MALIGNANT NEOPLASM OF CONJUNCTIVA
     Dosage: UNK, CYCLICAL
  2. FLUOROURACIL. [Concomitant]
     Active Substance: FLUOROURACIL
     Indication: MALIGNANT NEOPLASM OF CONJUNCTIVA
     Dosage: UNK, CYCLICAL
  3. KEYTRUDA [Suspect]
     Active Substance: PEMBROLIZUMAB
     Indication: MALIGNANT NEOPLASM OF CONJUNCTIVA
     Dosage: UNK, CYCLICAL

REACTIONS (1)
  - Off label use [Unknown]
